FAERS Safety Report 25499943 (Version 5)
Quarter: 2025Q4

REPORT INFORMATION
  Report Type: Report from Study
  Country: US (occurrence: US)
  Receive Date: 20250701
  Receipt Date: 20251010
  Transmission Date: 20260118
  Serious: Yes (Hospitalization, Other)
  Sender: NOVARTIS
  Company Number: US-002147023-NVSC2025US103110

PATIENT
  Age: 43 Year
  Sex: Female
  Weight: 51.701 kg

DRUGS (4)
  1. KESIMPTA [Suspect]
     Active Substance: OFATUMUMAB
     Indication: Relapsing-remitting multiple sclerosis
     Dosage: 0.4 ML, QW (LOADING DOSE)
     Route: 058
     Dates: start: 20250528
  2. KESIMPTA [Suspect]
     Active Substance: OFATUMUMAB
     Indication: Multiple sclerosis
     Dosage: 20 MG, OTHER (INJECT CONTENTS OF 1 PEN (0.4 ML; 20 MG) SUBCUTANEOUSLY EVERY 7 DAYS FOR 3 DOSES FOR I
     Route: 058
     Dates: start: 20250604
  3. KESIMPTA [Suspect]
     Active Substance: OFATUMUMAB
     Dosage: 20 MG, OTHER(INJECT CONTENTS OF 1 PEN (0.4 ML; 20 MG) SUBCUTANEOUSLY EVERY 7 DAYS FOR 3 DOSES FOR IN
     Route: 058
     Dates: start: 20250611, end: 20250611
  4. KESIMPTA [Suspect]
     Active Substance: OFATUMUMAB
     Dosage: 20 MG, QMO
     Route: 058

REACTIONS (27)
  - Thrombocytopenia [Recovered/Resolved]
  - Neutropenia [Recovered/Resolved]
  - Influenza like illness [Recovered/Resolved]
  - Fatigue [Not Recovered/Not Resolved]
  - Pain [Recovering/Resolving]
  - Chills [Recovered/Resolved]
  - Feeling hot [Recovered/Resolved]
  - Erythema [Recovered/Resolved]
  - Hyperhidrosis [Recovered/Resolved]
  - Pyrexia [Recovered/Resolved]
  - Rash [Recovered/Resolved]
  - Hepatic enzyme increased [Recovering/Resolving]
  - Pruritus [Recovered/Resolved]
  - Myalgia [Unknown]
  - Peripheral swelling [Recovering/Resolving]
  - Type I hypersensitivity [Unknown]
  - Erythema [Unknown]
  - Flushing [Unknown]
  - Urticaria [Unknown]
  - Skin oedema [Unknown]
  - Pruritus [Unknown]
  - Drug hypersensitivity [Unknown]
  - Monocyte count increased [Recovering/Resolving]
  - Lymphocyte count decreased [Recovering/Resolving]
  - White blood cell count decreased [Recovering/Resolving]
  - Platelet count decreased [Unknown]
  - Arthralgia [Unknown]

NARRATIVE: CASE EVENT DATE: 20250528
